FAERS Safety Report 16220013 (Version 1)
Quarter: 2019Q2

REPORT INFORMATION
  Report Type: Spontaneous
  Country: US (occurrence: US)
  Receive Date: 20190420
  Receipt Date: 20190420
  Transmission Date: 20190711
  Serious: No
  Sender: FDA-Public Use
  Company Number: US-JNJFOC-20190332275

PATIENT
  Sex: Female
  Weight: 8.62 kg

DRUGS (1)
  1. CHILDRENS TYLENOL [Suspect]
     Active Substance: ACETAMINOPHEN
     Indication: TEETHING
     Dosage: AS DIRECTED, EVERY 4 HOURS
     Route: 048

REACTIONS (1)
  - Drug ineffective [Unknown]
